FAERS Safety Report 18242669 (Version 1)
Quarter: 2020Q3

REPORT INFORMATION
  Report Type: Spontaneous
  Country: AU (occurrence: AU)
  Receive Date: 20200908
  Receipt Date: 20200908
  Transmission Date: 20201103
  Serious: Yes (Other)
  Sender: FDA-Public Use
  Company Number: AU-PBT-000033

PATIENT
  Age: 58 Year

DRUGS (4)
  1. PREDNISOLONE. [Suspect]
     Active Substance: PREDNISOLONE
     Indication: PROPHYLAXIS AGAINST TRANSPLANT REJECTION
     Route: 065
  2. METHYLPREDNISOLONE. [Suspect]
     Active Substance: METHYLPREDNISOLONE
     Indication: PROPHYLAXIS AGAINST TRANSPLANT REJECTION
     Route: 065
  3. MYCOPHENOLATE [Suspect]
     Active Substance: MYCOPHENOLIC ACID
     Indication: PROPHYLAXIS AGAINST TRANSPLANT REJECTION
     Route: 065
  4. TACROLIMUS. [Suspect]
     Active Substance: TACROLIMUS
     Indication: PROPHYLAXIS AGAINST TRANSPLANT REJECTION
     Route: 065

REACTIONS (13)
  - Rotavirus infection [Unknown]
  - Polyomavirus-associated nephropathy [Unknown]
  - Drug ineffective [Unknown]
  - Hypertension [Unknown]
  - Iron deficiency anaemia [Unknown]
  - Product use in unapproved indication [Unknown]
  - Cytomegalovirus viraemia [Unknown]
  - End stage renal disease [Unknown]
  - Respiratory syncytial virus infection [Unknown]
  - Large intestine polyp [Unknown]
  - Transplant rejection [Unknown]
  - Renal impairment [Unknown]
  - Cataract [Unknown]
